FAERS Safety Report 16239953 (Version 1)
Quarter: 2019Q2

REPORT INFORMATION
  Report Type: Spontaneous
  Country: US (occurrence: US)
  Receive Date: 20190425
  Receipt Date: 20190425
  Transmission Date: 20190711
  Serious: Yes (Death)
  Sender: FDA-Public Use
  Company Number: US-B.I. PHARMACEUTICALS,INC./RIDGEFIELD-2019-BI-018904

PATIENT
  Sex: Male

DRUGS (24)
  1. KEPPRA [Concomitant]
     Active Substance: LEVETIRACETAM
     Indication: PRODUCT USED FOR UNKNOWN INDICATION
     Dosage: 1,500 MG, 100 ML, 400 MUHOUR, IVPB, BID
     Route: 042
  2. MANNITOL. [Concomitant]
     Active Substance: MANNITOL
     Indication: PRODUCT USED FOR UNKNOWN INDICATION
     Dosage: 1GM/KG
     Route: 065
  3. CRESTOR [Concomitant]
     Active Substance: ROSUVASTATIN CALCIUM
     Indication: PRODUCT USED FOR UNKNOWN INDICATION
     Route: 048
  4. FLUTICASONE. [Concomitant]
     Active Substance: FLUTICASONE
     Indication: PRODUCT USED FOR UNKNOWN INDICATION
     Dosage: FORM: NASAL SPRAY SUSPENSION; STRENGTH: 50MCG/ ACTUATION
     Route: 045
  5. TAMSULOSIN [Concomitant]
     Active Substance: TAMSULOSIN
     Indication: PRODUCT USED FOR UNKNOWN INDICATION
     Dosage: FORM: ER; TAKE 1 CAPSULE BY ORAL ROUTE EVERY DAY 1/2 HOUR FOLLOWING THE SAME MEAL EACH DAY
     Route: 048
  6. SODIUM CHLORIDE. [Concomitant]
     Active Substance: SODIUM CHLORIDE
     Dosage: STRENGTH: 0.9%, 500ML
     Route: 042
  7. COLACE [Concomitant]
     Active Substance: DOCUSATE SODIUM
     Indication: PRODUCT USED FOR UNKNOWN INDICATION
     Route: 048
  8. PANTOPRAZOLE [Concomitant]
     Active Substance: PANTOPRAZOLE
     Indication: PRODUCT USED FOR UNKNOWN INDICATION
     Dosage: 40 MG 10 ML, IV PUSH, DAILY
     Route: 042
  9. FINASTERIDE. [Concomitant]
     Active Substance: FINASTERIDE
     Indication: PRODUCT USED FOR UNKNOWN INDICATION
     Route: 048
  10. CARDENE [Concomitant]
     Active Substance: NICARDIPINE HYDROCHLORIDE
     Indication: PRODUCT USED FOR UNKNOWN INDICATION
     Dosage: 50 MG/ NS 250 ML PRE-MIX 40 MG: INITIATE AT 5 MG/HR; TITRATE TO MAX 15 MG/HR, IV,
     Route: 042
  11. SODIUM CHLORIDE. [Concomitant]
     Active Substance: SODIUM CHLORIDE
     Indication: PRODUCT USED FOR UNKNOWN INDICATION
     Dosage: 23.4%,120 MEQ, 30 ML, IV PUSH,
     Route: 042
  12. PRAXBIND [Suspect]
     Active Substance: IDARUCIZUMAB
     Indication: PRODUCT USED FOR UNKNOWN INDICATION
     Dosage: 2.5 G, 50 ML, IV PUSH, Q3MINS INT
     Route: 042
  13. CARDENE [Concomitant]
     Active Substance: NICARDIPINE HYDROCHLORIDE
     Dosage: MISC
     Route: 065
  14. PROTONIX [Concomitant]
     Active Substance: PANTOPRAZOLE SODIUM
     Indication: PRODUCT USED FOR UNKNOWN INDICATION
     Dosage: 40 MG, 10 ML, IV PUSH, DAILY
     Route: 042
  15. COENZYME Q10 [Concomitant]
     Active Substance: UBIDECARENONE
     Route: 048
  16. CARDENE [Concomitant]
     Active Substance: NICARDIPINE HYDROCHLORIDE
     Dosage: 40 MG/ 200 ML PRE-MIX 40 MG: INITIATE AT 5MG/HR; TITRATE TO MAX 15MG/HR.,;
     Route: 042
  17. IOPAMIDOL [Concomitant]
     Active Substance: IOPAMIDOL
     Indication: PRODUCT USED FOR UNKNOWN INDICATION
     Dosage: STRENGTH: 61% SOLUTION; 100ML,
     Route: 042
  18. LISINOPRIL. [Concomitant]
     Active Substance: LISINOPRIL
     Indication: PRODUCT USED FOR UNKNOWN INDICATION
     Route: 048
  19. SOTALOL. [Concomitant]
     Active Substance: SOTALOL
     Indication: PRODUCT USED FOR UNKNOWN INDICATION
     Route: 048
  20. MOTRIN [Concomitant]
     Active Substance: IBUPROFEN
     Indication: PRODUCT USED FOR UNKNOWN INDICATION
     Route: 048
  21. COENZYME Q10 [Concomitant]
     Active Substance: UBIDECARENONE
     Indication: PRODUCT USED FOR UNKNOWN INDICATION
     Route: 048
  22. SODIUM CHLORIDE. [Concomitant]
     Active Substance: SODIUM CHLORIDE
     Dosage: 3%, 256.7MEQ;100 MUHOUR, IV,
     Route: 042
  23. MULTIVITAMIN [Concomitant]
     Active Substance: VITAMINS
     Indication: PRODUCT USED FOR UNKNOWN INDICATION
     Route: 048
  24. SOTALOL. [Concomitant]
     Active Substance: SOTALOL
     Route: 048

REACTIONS (2)
  - Coagulopathy [Fatal]
  - Cerebral haemorrhage [Fatal]
